FAERS Safety Report 12421888 (Version 1)
Quarter: 2016Q2

REPORT INFORMATION
  Report Type: Spontaneous
  Country: DZ (occurrence: DZ)
  Receive Date: 20160531
  Receipt Date: 20160531
  Transmission Date: 20160815
  Serious: Yes (Death, Other)
  Sender: FDA-Public Use
  Company Number: DZ-PFIZER INC-2016276095

PATIENT
  Age: 35 Year
  Sex: Male

DRUGS (5)
  1. SUNITINIB MALATE. [Suspect]
     Active Substance: SUNITINIB MALATE
     Dosage: 50 MG, (2ON /1 OFF)
  2. SUNITINIB MALATE. [Suspect]
     Active Substance: SUNITINIB MALATE
     Indication: RENAL CELL CARCINOMA
     Dosage: 50 MG, CYCLIC (4WEEK ON /2WEEK OFF)
     Dates: start: 200702, end: 2011
  3. SUNITINIB MALATE. [Suspect]
     Active Substance: SUNITINIB MALATE
     Dosage: 37.5 MG, CONTINUOUS
     Dates: start: 201201
  4. ZOLEDRONIC [Suspect]
     Active Substance: ZOLEDRONIC ACID
     Indication: RENAL CELL CARCINOMA
     Dosage: 4 MG, 28 D
  5. SUNITINIB MALATE. [Suspect]
     Active Substance: SUNITINIB MALATE
     Dosage: 50 MG, CYCLIC (4WEEK ON /2WEEK OFF)

REACTIONS (12)
  - Diarrhoea [Unknown]
  - Thrombocytopenia [Unknown]
  - Hypothyroidism [Unknown]
  - Myalgia [Unknown]
  - Palmar-plantar erythrodysaesthesia syndrome [Unknown]
  - Death [Fatal]
  - Asthenia [Unknown]
  - Arthralgia [Unknown]
  - Mucosal inflammation [Unknown]
  - Cell death [Unknown]
  - Renal function test abnormal [Recovered/Resolved]
  - Hypertension [Unknown]

NARRATIVE: CASE EVENT DATE: 201509
